FAERS Safety Report 5512406-8 (Version None)
Quarter: 2007Q4

REPORT INFORMATION
  Report Type: 
  Country: None (occurrence: None)
  Receive Date: 20071108
  Receipt Date: 20071029
  Transmission Date: 20080405
  Serious: Yes (Hospitalization)
  Sender: FDA-Public Use
  Company Number: 238037K07USA

PATIENT
  Age: 16 Year
  Sex: Female
  Weight: 107 kg

DRUGS (1)
  1. REBIF [Suspect]
     Indication: OFF LABEL USE
     Dosage: 44 MCG, 3 IN 1 WEEKS, SUBCUTANEOUS
     Route: 058
     Dates: start: 20060727

REACTIONS (3)
  - INJECTION SITE CELLULITIS [None]
  - INJECTION SITE ULCER [None]
  - WRONG TECHNIQUE IN DRUG USAGE PROCESS [None]
